FAERS Safety Report 10087724 (Version 2)
Quarter: 2014Q4

REPORT INFORMATION
  Report Type: Not Available
  Country: US (occurrence: US)
  Receive Date: 20140418
  Receipt Date: 20141021
  Transmission Date: 20150528
  Serious: No
  Sender: FDA-Public Use
  Company Number: US-PURDUE-USA-2014-0110368

PATIENT
  Sex: Male

DRUGS (2)
  1. OXYCONTIN [Suspect]
     Active Substance: OXYCODONE HYDROCHLORIDE
     Indication: PRODUCT USED FOR UNKNOWN INDICATION
     Dosage: 10 MG, TID
     Route: 048
     Dates: start: 2005
  2. OXYCODONE HYDROCHLORIDE (SIMILAR TO NDA 22-272) [Concomitant]
     Active Substance: OXYCODONE HYDROCHLORIDE
     Indication: PRODUCT USED FOR UNKNOWN INDICATION
     Dosage: 10 MG, Q4- 6H
     Route: 048

REACTIONS (5)
  - Feeling abnormal [Recovered/Resolved]
  - Nausea [Recovered/Resolved]
  - Renal pain [Unknown]
  - Constipation [Not Recovered/Not Resolved]
  - Drug effect decreased [Unknown]
